FAERS Safety Report 9525982 (Version 6)
Quarter: 2013Q4

REPORT INFORMATION
  Report Type: Spontaneous
  Country: FR (occurrence: FR)
  Receive Date: 20130916
  Receipt Date: 20131226
  Transmission Date: 20140711
  Serious: Yes (Death, Hospitalization)
  Sender: FDA-Public Use
  Company Number: FR-SANOFI-AVENTIS-2013SA090853

PATIENT
  Age: 41 Year
  Sex: Female

DRUGS (50)
  1. GRANOCYTE [Suspect]
     Indication: PRODUCT USED FOR UNKNOWN INDICATION
     Route: 042
     Dates: start: 20130807
  2. HEPARIN SODIUM [Suspect]
     Indication: PRODUCT USED FOR UNKNOWN INDICATION
     Dosage: DOSE:7000 MILLIUNIT(S)
     Route: 042
     Dates: start: 20130605
  3. LASILIX [Suspect]
     Indication: PRODUCT USED FOR UNKNOWN INDICATION
     Route: 042
     Dates: start: 20130716, end: 20130809
  4. LARGACTIL [Suspect]
     Indication: PRODUCT USED FOR UNKNOWN INDICATION
     Route: 042
     Dates: start: 20130619, end: 20130709
  5. EXACYL [Suspect]
     Indication: PRODUCT USED FOR UNKNOWN INDICATION
     Route: 042
     Dates: start: 20130727, end: 20130812
  6. FLAGYL [Suspect]
     Indication: PRODUCT USED FOR UNKNOWN INDICATION
     Route: 048
     Dates: start: 20130712, end: 20130812
  7. FORTUM [Suspect]
     Indication: PRODUCT USED FOR UNKNOWN INDICATION
     Route: 042
     Dates: start: 20130621, end: 20130809
  8. GENTAMICIN SULFATE [Suspect]
     Indication: PRODUCT USED FOR UNKNOWN INDICATION
     Route: 042
     Dates: start: 20130809, end: 20130811
  9. NOXAFIL [Suspect]
     Indication: PRODUCT USED FOR UNKNOWN INDICATION
     Route: 048
     Dates: start: 20130619, end: 20130708
  10. CANCIDAS [Suspect]
     Indication: PRODUCT USED FOR UNKNOWN INDICATION
     Route: 042
     Dates: start: 20130709, end: 20130709
  11. AMBISOME [Suspect]
     Indication: PRODUCT USED FOR UNKNOWN INDICATION
     Route: 042
     Dates: start: 20130709, end: 20130811
  12. BACTRIM [Suspect]
     Indication: PRODUCT USED FOR UNKNOWN INDICATION
     Route: 042
     Dates: start: 20130724, end: 20130809
  13. FOLINIC ACID [Suspect]
     Indication: PRODUCT USED FOR UNKNOWN INDICATION
     Route: 042
     Dates: start: 20130724, end: 20130809
  14. ZELITREX [Suspect]
     Indication: PRODUCT USED FOR UNKNOWN INDICATION
     Route: 042
     Dates: start: 20130709, end: 20130812
  15. CYMEVAN [Suspect]
     Indication: PRODUCT USED FOR UNKNOWN INDICATION
     Route: 042
     Dates: start: 20130726, end: 20130812
  16. FOSCAVIR [Suspect]
     Indication: PRODUCT USED FOR UNKNOWN INDICATION
     Route: 042
     Dates: start: 20130808
  17. IMMUNOGLOBULIN HUMAN NORMAL [Suspect]
     Indication: PRODUCT USED FOR UNKNOWN INDICATION
     Route: 042
  18. INEXIUM [Suspect]
     Indication: PRODUCT USED FOR UNKNOWN INDICATION
     Route: 042
     Dates: start: 20130709, end: 20130812
  19. SPASFON [Suspect]
     Indication: PRODUCT USED FOR UNKNOWN INDICATION
     Route: 042
     Dates: start: 20130619
  20. DELURSAN [Suspect]
     Indication: PRODUCT USED FOR UNKNOWN INDICATION
     Route: 048
     Dates: start: 20130605, end: 20130708
  21. DEFIBROTIDE [Suspect]
     Indication: PRODUCT USED FOR UNKNOWN INDICATION
     Route: 042
     Dates: start: 20130605, end: 20130812
  22. TRANXENE [Suspect]
     Indication: PRODUCT USED FOR UNKNOWN INDICATION
     Route: 048
     Dates: start: 20130622, end: 20130709
  23. OXYNORM [Suspect]
     Indication: PRODUCT USED FOR UNKNOWN INDICATION
     Route: 042
     Dates: start: 20130619
  24. PERFALGAN [Suspect]
     Indication: PRODUCT USED FOR UNKNOWN INDICATION
     Route: 042
     Dates: start: 20130710, end: 20130812
  25. SOLUMEDROL [Suspect]
     Indication: PRODUCT USED FOR UNKNOWN INDICATION
     Route: 042
     Dates: start: 20130709
  26. DROLEPTAN [Suspect]
     Indication: PRODUCT USED FOR UNKNOWN INDICATION
     Route: 042
     Dates: start: 20130712, end: 20130717
  27. ULTIVA [Suspect]
     Indication: PRODUCT USED FOR UNKNOWN INDICATION
     Route: 042
     Dates: start: 20130714, end: 20130717
  28. ATARAX [Suspect]
     Indication: PRODUCT USED FOR UNKNOWN INDICATION
     Route: 048
     Dates: start: 20130714
  29. SEROPLEX [Suspect]
     Indication: PRODUCT USED FOR UNKNOWN INDICATION
     Route: 048
     Dates: start: 20130721
  30. CERIS [Suspect]
     Indication: PRODUCT USED FOR UNKNOWN INDICATION
     Route: 048
     Dates: start: 20130807
  31. NOCTAMIDE [Suspect]
     Indication: PRODUCT USED FOR UNKNOWN INDICATION
     Route: 048
     Dates: start: 20130808
  32. COLISTIN [Concomitant]
     Dates: start: 20130605, end: 20130708
  33. VANCOMYCINE [Concomitant]
     Dates: start: 20130605
  34. CIFLOX [Concomitant]
     Dates: start: 20130621, end: 20130712
  35. TARGOCID [Concomitant]
     Dates: start: 20130710
  36. MYCOSTATINE [Concomitant]
     Dates: start: 20130605, end: 20130619
  37. TRIFLUCAN [Concomitant]
     Dates: start: 20130605, end: 20130618
  38. ZOVIRAX [Concomitant]
     Dates: start: 20130605, end: 20130709
  39. METHOTREXATE [Concomitant]
     Dates: start: 20130605, end: 20130619
  40. ELVORINE [Concomitant]
     Dates: start: 20130605, end: 20130619
  41. SANDIMMUN [Concomitant]
     Dates: start: 20130614, end: 20130708
  42. MOPRAL [Concomitant]
     Dates: start: 20130605, end: 20130618
  43. OGASTORO [Concomitant]
     Dates: start: 20130619, end: 20130708
  44. GELOX [Concomitant]
     Dates: start: 20130605, end: 20130708
  45. SMECTA [Concomitant]
     Dates: start: 20130620, end: 20130708
  46. LUTERAN [Concomitant]
     Dates: start: 20130605, end: 20130708
  47. LEXOMIL [Concomitant]
     Dates: start: 20130605, end: 20130708
  48. NOCTAMIDE [Concomitant]
     Dates: start: 20130605, end: 20130708
  49. ZOPHREN [Concomitant]
     Dates: start: 20130605, end: 20130708
  50. PRIMPERAN [Concomitant]
     Dates: start: 20130620, end: 20130709

REACTIONS (12)
  - Hepatitis acute [Fatal]
  - Renal failure acute [Fatal]
  - Multi-organ failure [Fatal]
  - Toxic epidermal necrolysis [Not Recovered/Not Resolved]
  - Oedema [Not Recovered/Not Resolved]
  - Blister [Not Recovered/Not Resolved]
  - Skin lesion [Not Recovered/Not Resolved]
  - Skin erosion [Not Recovered/Not Resolved]
  - Haematuria [Not Recovered/Not Resolved]
  - Mucosal erosion [Not Recovered/Not Resolved]
  - Eschar [Not Recovered/Not Resolved]
  - Graft versus host disease in intestine [Unknown]
